FAERS Safety Report 8942344 (Version 1)
Quarter: 2012Q4

REPORT INFORMATION
  Report Type: Spontaneous
  Country: US (occurrence: None)
  Receive Date: 20121123
  Receipt Date: 20121123
  Transmission Date: 20130627
  Serious: Yes (Other)
  Sender: FDA-Public Use
  Company Number: DKLU1086447

PATIENT
  Age: 8 Year
  Sex: Male

DRUGS (5)
  1. SABRIL [Suspect]
     Indication: GRAND MAL CONVULSION
     Dosage: AM
     Route: 048
     Dates: start: 20100304
  2. SABRIL [Suspect]
     Indication: GRAND MAL CONVULSION
     Dosage: PM
     Route: 048
     Dates: start: 20100304
  3. LAMOTRIGINE [Concomitant]
  4. DEPAKOTE (VALPROATE SEMISODIUM) [Concomitant]
  5. BANZEL (RUFINAMIDE) [Concomitant]

REACTIONS (1)
  - Brain operation [None]
